FAERS Safety Report 8152793-8 (Version None)
Quarter: 2012Q1

REPORT INFORMATION
  Report Type: 
  Country: None (occurrence: None)
  Receive Date: 20120221
  Receipt Date: 20120208
  Transmission Date: 20120608
  Serious: Yes (Other)
  Sender: FDA-Public Use
  Company Number: US-JNJFOC-20120205795

PATIENT
  Sex: Female

DRUGS (5)
  1. ACETAMINOPHEN [Suspect]
     Indication: HEADACHE
     Dosage: SHE WOULD TAKE 2 OCCASIONALLY 1-2 TIMES A MONTH. STARTED YEARS AGO.
     Route: 048
     Dates: end: 20120101
  2. BENAZEPRIL HYDROCHLORIDE [Concomitant]
     Indication: HYPERTENSION
     Dosage: 5/20 MG STARTED 8 YEARS AGO
     Route: 065
  3. TYLENOL PM EXTRA STENGTH [Suspect]
     Indication: SLEEP DISORDER THERAPY
     Dosage: TWO TAKEN ONCE OR TWICE PER MONTH
     Route: 048
     Dates: end: 20120101
  4. ACETAMINOPHEN [Suspect]
     Indication: PAIN
     Dosage: SHE WOULD TAKE 2 OCCASIONALLY 1-2 TIMES A MONTH. STARTED YEARS AGO.
     Route: 048
     Dates: end: 20120101
  5. SYNTHROID [Concomitant]
     Indication: HYPOTHYROIDISM
     Dosage: DOSE = 100 MCG STARTED 5 YEARS AGO
     Route: 065

REACTIONS (7)
  - LOSS OF CONSCIOUSNESS [None]
  - HEPATOMEGALY [None]
  - LOCALISED INTRAABDOMINAL FLUID COLLECTION [None]
  - RENAL DISORDER [None]
  - DYSPNOEA [None]
  - PAIN [None]
  - SKIN DISORDER [None]
